FAERS Safety Report 14156044 (Version 4)
Quarter: 2019Q2

REPORT INFORMATION
  Report Type: Spontaneous
  Country: US (occurrence: US)
  Receive Date: 20171103
  Receipt Date: 20190618
  Transmission Date: 20190711
  Serious: Yes (Other)
  Sender: FDA-Public Use
  Company Number: US-BIOGEN-2017BI00479241

PATIENT
  Age: 49 Year
  Sex: Female

DRUGS (1)
  1. AVONEX [Suspect]
     Active Substance: INTERFERON BETA-1A
     Indication: MULTIPLE SCLEROSIS
     Route: 050
     Dates: end: 20170907

REACTIONS (14)
  - Suicidal ideation [Recovered/Resolved]
  - Feeling abnormal [Not Recovered/Not Resolved]
  - Drug ineffective [Unknown]
  - Stress [Not Recovered/Not Resolved]
  - Back pain [Unknown]
  - Emotional distress [Not Recovered/Not Resolved]
  - Suicide attempt [Recovered/Resolved]
  - Aphasia [Unknown]
  - Band sensation [Unknown]
  - Anger [Not Recovered/Not Resolved]
  - Multiple sclerosis relapse [Unknown]
  - Trigeminal neuralgia [Unknown]
  - Breast mass [Recovered/Resolved]
  - Crying [Recovered/Resolved]

NARRATIVE: CASE EVENT DATE: 201702
